FAERS Safety Report 20884564 (Version 1)
Quarter: 2022Q2

REPORT INFORMATION
  Report Type: Spontaneous
  Country: FR (occurrence: FR)
  Receive Date: 20220527
  Receipt Date: 20220527
  Transmission Date: 20220720
  Serious: Yes (Hospitalization)
  Sender: FDA-Public Use
  Company Number: FR-MYLANLABS-2022M1039299

PATIENT
  Age: 60 Year
  Sex: Male

DRUGS (5)
  1. ACETAMINOPHEN [Suspect]
     Active Substance: ACETAMINOPHEN
     Indication: Sciatica
     Dosage: 1 GRAM, QID
     Route: 048
  2. IBUPROFEN [Suspect]
     Active Substance: IBUPROFEN
     Indication: Sciatica
     Dosage: 600 MILLIGRAM, TID (THREE TIMES)
     Route: 048
  3. OXYCODONE [Suspect]
     Active Substance: OXYCODONE
     Indication: Sciatica
     Dosage: 10 MILLIGRAM, TID (THREE TIMES A DAY)
     Route: 048
  4. SOLU-MEDROL [Suspect]
     Active Substance: METHYLPREDNISOLONE SODIUM SUCCINATE
     Indication: Sciatica
     Dosage: UNK
     Route: 030
  5. CORTISONE [Suspect]
     Active Substance: CORTISONE
     Indication: Sciatica
     Dosage: UNK (TRANSFORAMINAL)

REACTIONS (1)
  - Drug ineffective [Unknown]
